FAERS Safety Report 12247903 (Version 2)
Quarter: 2016Q2

REPORT INFORMATION
  Report Type: Report from Study
  Country: JP (occurrence: JP)
  Receive Date: 20160408
  Receipt Date: 20160603
  Transmission Date: 20160815
  Serious: Yes (Other)
  Sender: FDA-Public Use
  Company Number: JP-009507513-1604JPN004029

PATIENT

DRUGS (7)
  1. PROPOFOL. [Concomitant]
     Active Substance: PROPOFOL
     Indication: INDUCTION OF ANAESTHESIA
     Dosage: 1 TO 2 MG/KG
     Route: 065
  2. SEVOFLURANE. [Concomitant]
     Active Substance: SEVOFLURANE
     Indication: ANAESTHESIA
     Dosage: 33-40% IN OXYGEN, INHALATION
     Route: 055
  3. ESLAX [Concomitant]
     Active Substance: ROCURONIUM BROMIDE
     Dosage: CONTINUOUSLY ADMINISTERED AT AN INJECTION RATE OF 4 UG/KG/MIN UNTIL THE END OF SURGERY
     Route: 065
  4. ULTIVA [Concomitant]
     Active Substance: REMIFENTANIL HYDROCHLORIDE
     Indication: ANAESTHESIA
     Dosage: DAILY DOSAGE UNKNOWN
     Route: 065
  5. ULTIVA [Concomitant]
     Active Substance: REMIFENTANIL HYDROCHLORIDE
     Indication: INDUCTION OF ANAESTHESIA
     Dosage: 0.3 TO 0.5 UG/KG/MIN
     Route: 065
  6. ESLAX [Concomitant]
     Active Substance: ROCURONIUM BROMIDE
     Indication: MUSCLE RELAXANT THERAPY
     Dosage: 0.6 MG/KG, UNK
     Route: 065
  7. SUGAMMADEX SODIUM [Suspect]
     Active Substance: SUGAMMADEX SODIUM
     Dosage: 2 MG/KG, BEFORE SEVOFLURANE DISCONTINUATION
     Route: 065

REACTIONS (1)
  - Laryngospasm [Recovered/Resolved]
